FAERS Safety Report 24910149 (Version 1)
Quarter: 2025Q1

REPORT INFORMATION
  Report Type: Spontaneous
  Country: CN (occurrence: CN)
  Receive Date: 20250131
  Receipt Date: 20250131
  Transmission Date: 20250408
  Serious: Yes (Death, Other)
  Sender: PFIZER
  Company Number: CN-PFIZER INC-PV202500010398

PATIENT
  Age: 67 Year
  Sex: Male

DRUGS (12)
  1. CYTARABINE [Suspect]
     Active Substance: CYTARABINE
     Indication: Acute myeloid leukaemia
     Dates: start: 201810
  2. CYTARABINE [Suspect]
     Active Substance: CYTARABINE
     Dates: start: 202009
  3. CYTARABINE [Suspect]
     Active Substance: CYTARABINE
     Dates: start: 202103
  4. CYTARABINE [Suspect]
     Active Substance: CYTARABINE
     Dates: start: 202111
  5. CYTARABINE [Suspect]
     Active Substance: CYTARABINE
     Dates: start: 202203
  6. VENETOCLAX [Suspect]
     Active Substance: VENETOCLAX
     Indication: Acute myeloid leukaemia
     Dates: start: 201810
  7. VENETOCLAX [Suspect]
     Active Substance: VENETOCLAX
     Dates: start: 201810
  8. VENETOCLAX [Suspect]
     Active Substance: VENETOCLAX
     Dates: start: 202009
  9. VENETOCLAX [Suspect]
     Active Substance: VENETOCLAX
     Dates: start: 202103
  10. VENETOCLAX [Suspect]
     Active Substance: VENETOCLAX
     Dates: start: 202111
  11. VENETOCLAX [Suspect]
     Active Substance: VENETOCLAX
     Dates: start: 202203
  12. ENASIDENIB [Suspect]
     Active Substance: ENASIDENIB
     Indication: Acute myeloid leukaemia
     Dosage: 100 MG, 1X/DAY
     Dates: start: 202203

REACTIONS (2)
  - Neoplasm progression [Fatal]
  - Blood disorder [Unknown]
